FAERS Safety Report 16195307 (Version 1)
Quarter: 2019Q2

REPORT INFORMATION
  Report Type: Spontaneous
  Country: CA (occurrence: CA)
  Receive Date: 20190415
  Receipt Date: 20190415
  Transmission Date: 20190711
  Serious: Yes (Other)
  Sender: FDA-Public Use
  Company Number: CA-TEVA-2019-CA-1037342

PATIENT
  Age: 50 Year
  Sex: Female

DRUGS (4)
  1. ARAVA [Concomitant]
     Active Substance: LEFLUNOMIDE
     Dosage: 10 MILLIGRAM DAILY;
  2. FOLIC ACID. [Concomitant]
     Active Substance: FOLIC ACID
     Route: 048
  3. METHOTREXATE. [Suspect]
     Active Substance: METHOTREXATE
     Indication: INFLAMMATION
     Route: 058
  4. PREDNISONE. [Concomitant]
     Active Substance: PREDNISONE
     Route: 048

REACTIONS (15)
  - Drug ineffective [Recovering/Resolving]
  - Muscle tightness [Recovering/Resolving]
  - Cardiomegaly [Recovering/Resolving]
  - Gait disturbance [Recovering/Resolving]
  - Urine leukocyte esterase positive [Recovering/Resolving]
  - Haemoglobin decreased [Recovering/Resolving]
  - Mean cell volume decreased [Recovering/Resolving]
  - Bacterial test positive [Recovering/Resolving]
  - Red blood cell count decreased [Recovering/Resolving]
  - Fatigue [Recovering/Resolving]
  - Renal impairment [Recovering/Resolving]
  - Vitamin D decreased [Recovering/Resolving]
  - Drug intolerance [Recovering/Resolving]
  - Haematocrit decreased [Recovering/Resolving]
  - Urinary sediment present [Recovering/Resolving]
